APPROVED DRUG PRODUCT: DIFFERIN
Active Ingredient: ADAPALENE
Strength: 0.1% **Federal Register determination that product was not discontinued or withdrawn for safety or effectiveness reasons**
Dosage Form/Route: SOLUTION;TOPICAL
Application: N020338 | Product #001
Applicant: GALDERMA LABORATORIES LP
Approved: May 31, 1996 | RLD: Yes | RS: No | Type: DISCN